FAERS Safety Report 11402660 (Version 1)
Quarter: 2015Q3

REPORT INFORMATION
  Report Type: Spontaneous
  Country: US (occurrence: US)
  Receive Date: 20150821
  Receipt Date: 20150821
  Transmission Date: 20151125
  Serious: No
  Sender: FDA-Public Use
  Company Number: US-ROCHE-1379585

PATIENT
  Age: 25 Year
  Sex: Female

DRUGS (3)
  1. PEGASYS [Suspect]
     Active Substance: PEGINTERFERON ALFA-2A
     Indication: HEPATITIS C
     Route: 065
     Dates: end: 201310
  2. COPEGUS [Suspect]
     Active Substance: RIBAVIRIN
     Indication: HEPATITIS C
     Dosage: 48 WEEKS
     Route: 065
     Dates: start: 2013, end: 201310
  3. TELAPREVIR [Suspect]
     Active Substance: TELAPREVIR
     Indication: HEPATITIS C
     Dosage: 48 WEEKS
     Route: 065
     Dates: start: 2013, end: 201310

REACTIONS (2)
  - Alopecia [Not Recovered/Not Resolved]
  - No therapeutic response [Unknown]
